FAERS Safety Report 20578139 (Version 1)
Quarter: 2022Q1

REPORT INFORMATION
  Report Type: Spontaneous
  Country: FR (occurrence: FR)
  Receive Date: 20220310
  Receipt Date: 20220310
  Transmission Date: 20220424
  Serious: Yes (Other)
  Sender: FDA-Public Use
  Company Number: None

PATIENT
  Age: 83 Year
  Sex: Female
  Weight: 73.1 kg

DRUGS (16)
  1. ALPRAZOLAM [Suspect]
     Active Substance: ALPRAZOLAM
     Dosage: UNK
     Route: 048
     Dates: start: 20211109
  2. FENTANYL [Suspect]
     Active Substance: FENTANYL
     Indication: Hyperkalaemia
     Dosage: 1 DF, AS NEEDED
     Route: 060
     Dates: start: 20211028, end: 20211111
  3. NALOXEGOL OXALATE [Suspect]
     Active Substance: NALOXEGOL OXALATE
     Dosage: UNK
     Route: 048
     Dates: start: 20211031, end: 20211108
  4. DUPHALAC [Suspect]
     Active Substance: LACTULOSE
     Dosage: UNK
     Route: 048
     Dates: start: 20211028, end: 20211112
  5. NOVORAPID [Suspect]
     Active Substance: INSULIN ASPART
     Indication: Hyperkalaemia
     Dosage: 100 IU, 1X/DAY
     Route: 042
     Dates: start: 20211109, end: 20211110
  6. INNOHEP [Suspect]
     Active Substance: TINZAPARIN SODIUM
     Dosage: 13000 IU, 1X/DAY
     Route: 058
     Dates: start: 20211109, end: 20211109
  7. METOPROLOL TARTRATE [Concomitant]
     Active Substance: METOPROLOL TARTRATE
     Dosage: UNK
  8. LOVENOX [Concomitant]
     Active Substance: ENOXAPARIN SODIUM
  9. PANTOPRAZOLE [Concomitant]
     Active Substance: PANTOPRAZOLE
  10. ACETAMINOPHEN [Concomitant]
     Active Substance: ACETAMINOPHEN
  11. AMLODIPINE [Concomitant]
     Active Substance: AMLODIPINE BESYLATE
  12. LEVOTHYROXINE [Concomitant]
     Active Substance: LEVOTHYROXINE
  13. OXYCODONE [Concomitant]
     Active Substance: OXYCODONE
  14. CANDESARTAN CILEXETIL [Concomitant]
     Active Substance: CANDESARTAN CILEXETIL
  15. KARDEGIC [Concomitant]
     Active Substance: ASPIRIN DL-LYSINE
  16. PREDNISOLONE [Concomitant]
     Active Substance: PREDNISOLONE

REACTIONS (1)
  - Rash morbilliform [Unknown]

NARRATIVE: CASE EVENT DATE: 20211112
